FAERS Safety Report 16627916 (Version 1)
Quarter: 2019Q3

REPORT INFORMATION
  Report Type: Spontaneous
  Country: FR (occurrence: FR)
  Receive Date: 20190724
  Receipt Date: 20190724
  Transmission Date: 20191004
  Serious: Yes (Death)
  Sender: FDA-Public Use
  Company Number: FR-PFIZER INC-2019311684

PATIENT
  Age: 40 Year
  Sex: Female

DRUGS (7)
  1. TERBINAFINE. [Suspect]
     Active Substance: TERBINAFINE
     Indication: FUNGAL INFECTION
     Dosage: UNK (SYSTEMIC)
     Dates: start: 2011
  2. TERBINAFINE. [Suspect]
     Active Substance: TERBINAFINE
     Indication: PANTOEA AGGLOMERANS INFECTION
     Dosage: UNK
     Dates: start: 2012
  3. VORICONAZOLE. [Suspect]
     Active Substance: VORICONAZOLE
     Indication: FUNGAL INFECTION
     Dosage: UNK
     Dates: start: 2012
  4. 5-FLUOROCYTOSINE [Suspect]
     Active Substance: FLUCYTOSINE
     Indication: FUNGAL INFECTION
     Dosage: UNK
     Dates: start: 2012
  5. VORICONAZOLE. [Suspect]
     Active Substance: VORICONAZOLE
     Indication: CHROMOBLASTOMYCOSIS
  6. TERBINAFINE. [Suspect]
     Active Substance: TERBINAFINE
     Indication: CHROMOBLASTOMYCOSIS
  7. 5-FLUOROCYTOSINE [Suspect]
     Active Substance: FLUCYTOSINE
     Indication: CHROMOBLASTOMYCOSIS

REACTIONS (1)
  - Drug ineffective [Fatal]

NARRATIVE: CASE EVENT DATE: 201212
